FAERS Safety Report 5742965-1 (Version None)
Quarter: 2008Q2

REPORT INFORMATION
  Report Type: 
  Country: None (occurrence: None)
  Receive Date: 20080515
  Receipt Date: 20080515
  Transmission Date: 20081010
  Serious: No
  Sender: FDA-Public Use
  Company Number: None

PATIENT
  Sex: Female
  Weight: 77.1115 kg

DRUGS (10)
  1. BONIVA [Suspect]
     Indication: OSTEOPOROSIS
     Dosage: 3MG QUARTERLY IV BOLUS  FIRST DOSE ONLY
     Route: 042
  2. GLIMEPIRIDE [Concomitant]
  3. SERTRALINE [Concomitant]
  4. TRIAMTERENE AND HYDROCHLOROTHIAZIDE [Concomitant]
  5. DILTIAZEM CD [Concomitant]
  6. RANITIDINE [Concomitant]
  7. COZAAR [Concomitant]
  8. ZETIA [Concomitant]
  9. FISH OIL [Concomitant]
  10. LESCOL [Concomitant]

REACTIONS (4)
  - ARTHRALGIA [None]
  - DIARRHOEA [None]
  - MELAENA [None]
  - VOMITING [None]
